FAERS Safety Report 6118461-9 (Version None)
Quarter: 2009Q1

REPORT INFORMATION
  Report Type: 
  Country: None (occurrence: None)
  Receive Date: 20090314
  Receipt Date: 20090216
  Transmission Date: 20090719
  Serious: No
  Sender: FDA-Public Use
  Company Number: US-ABBOTT-09P-163-0557920-00

PATIENT
  Sex: Female
  Weight: 77.18 kg

DRUGS (3)
  1. HUMIRA [Suspect]
     Indication: RHEUMATOID ARTHRITIS
     Route: 058
     Dates: start: 20090110
  2. HUMIRA [Suspect]
     Indication: SYSTEMIC LUPUS ERYTHEMATOSUS
  3. PREVACID [Concomitant]
     Indication: DYSPEPSIA

REACTIONS (5)
  - CONTUSION [None]
  - FATIGUE [None]
  - INSOMNIA [None]
  - NIGHTMARE [None]
  - SLEEP TALKING [None]
